FAERS Safety Report 14254373 (Version 5)
Quarter: 2021Q4

REPORT INFORMATION
  Report Type: Report from Study
  Country: GB (occurrence: GB)
  Receive Date: 20171206
  Receipt Date: 20211009
  Transmission Date: 20220303
  Serious: Yes (Other)
  Sender: FDA-Public Use
  Company Number: None

PATIENT
  Age: 82 Year
  Sex: Male

DRUGS (4)
  1. EPLERENONE [Suspect]
     Active Substance: EPLERENONE
     Indication: Left ventricular failure
     Dosage: 50 MG,QD (50 MG, 1D)
     Route: 048
     Dates: start: 20160815, end: 20171004
  2. CANDESARTAN [Suspect]
     Active Substance: CANDESARTAN
     Indication: Left ventricular failure
     Dosage: 16 MG, 1D
     Route: 048
     Dates: start: 20121015, end: 20171004
  3. UMECLIDINIUM BROMIDE [Suspect]
     Active Substance: UMECLIDINIUM BROMIDE
     Indication: Chronic obstructive pulmonary disease
     Dosage: 30
     Route: 055
     Dates: start: 20170220
  4. BUMETANIDE [Suspect]
     Active Substance: BUMETANIDE
     Indication: Left ventricular failure
     Dosage: 2 MG,QD (1 MG, BID)
     Route: 048
     Dates: start: 20161007, end: 20171004

REACTIONS (1)
  - Acute kidney injury [Recovered/Resolved]

NARRATIVE: CASE EVENT DATE: 20170901
